FAERS Safety Report 4379141-3 (Version None)
Quarter: 2004Q2

REPORT INFORMATION
  Report Type: 
  Country: None (occurrence: None)
  Receive Date: 20040610
  Receipt Date: 20040602
  Transmission Date: 20050107
  Serious: Yes (Other)
  Sender: FDA-Public Use
  Company Number: 2004216760US

PATIENT
  Sex: Female

DRUGS (8)
  1. PROVERA [Suspect]
     Indication: HORMONE REPLACEMENT THERAPY
  2. PREMARIN [Suspect]
     Indication: HORMONE REPLACEMENT THERAPY
  3. PREMPRO [Suspect]
     Indication: HORMONE REPLACEMENT THERAPY
  4. OGEN [Suspect]
     Indication: HORMONE REPLACEMENT THERAPY
  5. CLIMARA [Suspect]
     Indication: HORMONE REPLACEMENT THERAPY
  6. ESTROGEN NOS(ESTROGEN NOS) [Suspect]
     Indication: HORMONE REPLACEMENT THERAPY
  7. CYCRIN [Suspect]
  8. ESTRADERM [Suspect]
     Indication: HORMONE REPLACEMENT THERAPY

REACTIONS (1)
  - BREAST CANCER [None]
